FAERS Safety Report 11694030 (Version 1)
Quarter: 2015Q4

REPORT INFORMATION
  Report Type: Spontaneous
  Country: TW (occurrence: TW)
  Receive Date: 20151103
  Receipt Date: 20151103
  Transmission Date: 20160304
  Serious: Yes (Other)
  Sender: FDA-Public Use
  Company Number: TW-HQ SPECIALTY-TW-2015INT000596

PATIENT
  Age: 64 Year
  Sex: Male

DRUGS (5)
  1. CISPLATIN. [Suspect]
     Active Substance: CISPLATIN
     Indication: THYROID CANCER
     Dosage: 60 MG/M2, UNK, FIRST CYCLE
     Dates: start: 20130906, end: 2013
  2. CISPLATIN. [Suspect]
     Active Substance: CISPLATIN
     Dosage: UNK
     Dates: start: 20131005
  3. DOXORUBICIN [Suspect]
     Active Substance: DOXORUBICIN
     Dosage: UNK
     Dates: start: 20131005
  4. RADIOTHERAPY [Suspect]
     Active Substance: RADIATION THERAPY
     Indication: THYROID CANCER
     Dosage: NECK RADIATION (66 GY/30 FRACTIONS)
     Dates: start: 20130917
  5. DOXORUBICIN [Suspect]
     Active Substance: DOXORUBICIN
     Indication: THYROID CANCER
     Dosage: 60 MG/M2, UNK, FIRST CYCLE
     Dates: start: 20130906, end: 2013

REACTIONS (1)
  - Febrile neutropenia [Recovered/Resolved]
